FAERS Safety Report 5916050-X (Version None)
Quarter: 2008Q4

REPORT INFORMATION
  Report Type: 
  Country: None (occurrence: None)
  Receive Date: 20081013
  Receipt Date: 20081010
  Transmission Date: 20090506
  Serious: Yes (Hospitalization)
  Sender: FDA-Public Use
  Company Number: AU-BRISTOL-MYERS SQUIBB COMPANY-14364517

PATIENT
  Sex: Male

DRUGS (2)
  1. AVAPRO [Suspect]
  2. ZOLOFT [Suspect]

REACTIONS (1)
  - LICHENOID KERATOSIS [None]
